FAERS Safety Report 23171536 (Version 1)
Quarter: 2023Q4

REPORT INFORMATION
  Report Type: Spontaneous
  Country: ES (occurrence: None)
  Receive Date: 20231110
  Receipt Date: 20231110
  Transmission Date: 20240110
  Serious: Yes (Hospitalization)
  Sender: FDA-Public Use
  Company Number: 2023A242932

PATIENT
  Age: 71 Year
  Sex: Female

DRUGS (5)
  1. OMEPRAZOLE [Suspect]
     Active Substance: OMEPRAZOLE
     Indication: Prophylaxis
     Dosage: 1 AL D?A
     Route: 042
     Dates: start: 20230710, end: 20230801
  2. PACLITAXEL [Suspect]
     Active Substance: PACLITAXEL
     Indication: Invasive ductal breast carcinoma
     Dosage: 114 MG LAS 2 PRIMERAS DOSIS (D1, D8), 86 MG TERCERA DOSIS (D15)
     Route: 040
     Dates: start: 20230710, end: 20230725
  3. PACLITAXEL [Suspect]
     Active Substance: PACLITAXEL
     Indication: Invasive ductal breast carcinoma
     Dosage: 86 MG THIRD DOSE (D15)
     Dates: start: 20230725, end: 20230725
  4. ATORVASTATIN [Suspect]
     Active Substance: ATORVASTATIN
     Indication: Dyslipidaemia
     Dosage: 1 AL D?A
     Route: 048
     Dates: start: 20230710, end: 20230801
  5. CARBOPLATIN [Suspect]
     Active Substance: CARBOPLATIN
     Indication: Invasive ductal breast carcinoma
     Dosage: 400 MG DU400.0MG ONCE/SINGLE ADMINISTRATION
     Route: 040
     Dates: start: 20230710, end: 20230710

REACTIONS (1)
  - Mixed liver injury [Recovered/Resolved]

NARRATIVE: CASE EVENT DATE: 20230724
